FAERS Safety Report 7913036-0 (Version None)
Quarter: 2011Q4

REPORT INFORMATION
  Report Type: 
  Country: None (occurrence: None)
  Receive Date: 20111114
  Receipt Date: 20111104
  Transmission Date: 20120403
  Serious: Yes (Hospitalization)
  Sender: FDA-Public Use
  Company Number: US-US-EMD SERONO, INC.-7093974

PATIENT
  Sex: Female
  Weight: 68 kg

DRUGS (7)
  1. REBIF [Suspect]
     Route: 058
     Dates: start: 20110301
  2. BACLOFEN [Concomitant]
     Indication: MUSCLE SPASMS
  3. IMIPRAMINE [Concomitant]
     Indication: DEPRESSION
  4. GABAPENTIN [Concomitant]
     Indication: PAIN
  5. LISINOPRIL [Concomitant]
     Indication: HYPERTENSION
  6. REBIF [Suspect]
     Indication: MULTIPLE SCLEROSIS
     Route: 058
     Dates: start: 20061023
  7. STOOL SOFTENER [Concomitant]
     Indication: CONSTIPATION

REACTIONS (2)
  - LOWER LIMB FRACTURE [None]
  - FALL [None]
